FAERS Safety Report 9057580 (Version 2)
Quarter: 2016Q3

REPORT INFORMATION
  Report Type: Spontaneous
  Country: BR (occurrence: BR)
  Receive Date: 20130204
  Receipt Date: 20160705
  Transmission Date: 20161109
  Serious: Yes (Other)
  Sender: FDA-Public Use
  Company Number: BR-PFIZER INC-2013042519

PATIENT
  Age: 44 Year
  Sex: Female

DRUGS (4)
  1. PREGABALIN. [Suspect]
     Active Substance: PREGABALIN
     Indication: NEURALGIA
     Dosage: 150 MG, DAILY
  2. PREGABALIN. [Suspect]
     Active Substance: PREGABALIN
     Dosage: 300 MG, DAILY
  3. DICLOFENAC [Concomitant]
     Active Substance: DICLOFENAC
     Indication: NEURALGIA
     Dosage: 50 MG, 3X/DAY
  4. CYCLOBENZAPRINE [Concomitant]
     Active Substance: CYCLOBENZAPRINE
     Indication: NEURALGIA
     Dosage: 10 MG, 2X/DAY

REACTIONS (6)
  - Disorientation [Recovering/Resolving]
  - Hallucination, visual [Recovering/Resolving]
  - Psychotic disorder [Recovering/Resolving]
  - Irritability [Recovering/Resolving]
  - Confusional state [Recovering/Resolving]
  - Drug ineffective [Unknown]
